FAERS Safety Report 8373998-7 (Version None)
Quarter: 2012Q2

REPORT INFORMATION
  Report Type: 
  Country: None (occurrence: None)
  Receive Date: 20120517
  Receipt Date: 20120511
  Transmission Date: 20120825
  Serious: Yes (Life-Threatening, Hospitalization)
  Sender: FDA-Public Use
  Company Number: DAV-AE-FUR-12-09

PATIENT
  Age: 61 Year
  Sex: Female

DRUGS (3)
  1. CARVEDILOL [Concomitant]
  2. FUROSEMIDE [Suspect]
     Dosage: 20 MG, ORAL
     Route: 048
  3. LISINOPRIL [Concomitant]

REACTIONS (6)
  - ELECTROLYTE IMBALANCE [None]
  - VENTRICULAR FIBRILLATION [None]
  - CARDIAC ARREST [None]
  - ANAEMIA [None]
  - GASTROENTERITIS [None]
  - HYPOKALAEMIA [None]
